FAERS Safety Report 12424326 (Version 1)
Quarter: 2016Q2

REPORT INFORMATION
  Report Type: Spontaneous
  Country: US (occurrence: US)
  Receive Date: 20160601
  Receipt Date: 20160601
  Transmission Date: 20160815
  Serious: No
  Sender: FDA-Public Use
  Company Number: US-NOVEN PHARMACEUTICALS, INC.-US2015001267

PATIENT
  Age: 11 Year
  Sex: Male

DRUGS (2)
  1. DAYTRANA [Suspect]
     Active Substance: METHYLPHENIDATE
     Indication: ATTENTION DEFICIT/HYPERACTIVITY DISORDER
     Dosage: UNK
     Route: 062
     Dates: start: 2008
  2. DAYTRANA [Suspect]
     Active Substance: METHYLPHENIDATE
     Dosage: 10 MG, PRESCRIBED TO USE TWO 10 MG PATCHES DUE TO UNAVAILABILTY OF 20 MG
     Route: 062
     Dates: start: 2015

REACTIONS (4)
  - Drug ineffective [Unknown]
  - Drug effect increased [Unknown]
  - Disturbance in social behaviour [Unknown]
  - Off label use [Unknown]

NARRATIVE: CASE EVENT DATE: 2015
